APPROVED DRUG PRODUCT: FOCALIN XR
Active Ingredient: DEXMETHYLPHENIDATE HYDROCHLORIDE
Strength: 35MG
Dosage Form/Route: CAPSULE, EXTENDED RELEASE;ORAL
Application: N021802 | Product #007 | TE Code: AB
Applicant: SANDOZ INC
Approved: Apr 21, 2011 | RLD: Yes | RS: No | Type: RX